FAERS Safety Report 10688508 (Version 3)
Quarter: 2016Q4

REPORT INFORMATION
  Report Type: Report from Study
  Country: DE (occurrence: DE)
  Receive Date: 20150102
  Receipt Date: 20161215
  Transmission Date: 20170206
  Serious: Yes (Hospitalization)
  Sender: FDA-Public Use
  Company Number: DE-009507513-1409DEU011814

PATIENT
  Age: 52 Year
  Sex: Female

DRUGS (4)
  1. PEMBROLIZUMAB. [Suspect]
     Active Substance: PEMBROLIZUMAB
     Dosage: 200 MG, Q3W
     Route: 042
     Dates: start: 20141212, end: 20141212
  2. PEMBROLIZUMAB. [Suspect]
     Active Substance: PEMBROLIZUMAB
     Indication: METASTATIC MALIGNANT MELANOMA
     Dosage: 200 MG, Q3W
     Route: 042
     Dates: start: 20140918, end: 20140918
  3. PEMBROLIZUMAB. [Suspect]
     Active Substance: PEMBROLIZUMAB
     Dosage: 200 MG, Q3W
     Route: 042
     Dates: start: 20141016, end: 20141016
  4. PEMBROLIZUMAB. [Suspect]
     Active Substance: PEMBROLIZUMAB
     Dosage: 200 MG, Q3W
     Route: 042
     Dates: start: 20141121, end: 20141121

REACTIONS (6)
  - Leukoencephalopathy [Unknown]
  - Organic brain syndrome [Unknown]
  - Headache [Unknown]
  - Organic brain syndrome [Unknown]
  - Encephalitis viral [Unknown]
  - Meningitis [Unknown]

NARRATIVE: CASE EVENT DATE: 20140919
